FAERS Safety Report 16115266 (Version 1)
Quarter: 2019Q1

REPORT INFORMATION
  Report Type: Report from Study
  Country: US (occurrence: US)
  Receive Date: 20190325
  Receipt Date: 20190325
  Transmission Date: 20190418
  Serious: Yes (Hospitalization)
  Sender: FDA-Public Use
  Company Number: US-ACTELION-A-NJ2018-172012

PATIENT
  Sex: Female
  Weight: 58.96 kg

DRUGS (4)
  1. OPSUMIT [Suspect]
     Active Substance: MACITENTAN
     Indication: PULMONARY ARTERIAL HYPERTENSION
     Dosage: 10 MG, QD
     Route: 048
  2. LASIX [Concomitant]
     Active Substance: FUROSEMIDE
  3. ADEMPAS [Suspect]
     Active Substance: RIOCIGUAT
     Indication: PRODUCT USED FOR UNKNOWN INDICATION
     Dosage: 2 MG, TID
     Route: 065
  4. ADEMPAS [Suspect]
     Active Substance: RIOCIGUAT
     Dosage: 2.5 MG, TID
     Route: 065

REACTIONS (12)
  - Dyspnoea [Unknown]
  - Dizziness [Unknown]
  - Swelling [Unknown]
  - Dehydration [Unknown]
  - Dyspnoea exertional [Unknown]
  - Viral infection [Unknown]
  - Asthenia [Unknown]
  - Hypotension [Unknown]
  - Dizziness postural [Unknown]
  - Headache [Unknown]
  - Bacterial infection [Unknown]
  - Fatigue [Unknown]
